FAERS Safety Report 16254235 (Version 3)
Quarter: 2019Q3

REPORT INFORMATION
  Report Type: Report from Study
  Country: US (occurrence: US)
  Receive Date: 20190430
  Receipt Date: 20190926
  Transmission Date: 20191004
  Serious: Yes (Other)
  Sender: FDA-Public Use
  Company Number: PHEH2019US017748

PATIENT
  Age: 35 Year
  Sex: Female

DRUGS (1)
  1. GILENYA [Suspect]
     Active Substance: FINGOLIMOD HYDROCHLORIDE
     Indication: MULTIPLE SCLEROSIS
     Dosage: 0.5 MG, QD
     Route: 048
     Dates: start: 20190413, end: 20190810

REACTIONS (12)
  - Weight decreased [Unknown]
  - Gastric ulcer [Unknown]
  - Vertigo [Recovered/Resolved]
  - Systemic toxicity [Unknown]
  - Dry skin [Unknown]
  - Dizziness [Unknown]
  - Tendonitis [Unknown]
  - Vaginal infection [Unknown]
  - Metabolic disorder [Unknown]
  - Arthralgia [Unknown]
  - Oral mucosal blistering [Unknown]
  - Influenza like illness [Unknown]

NARRATIVE: CASE EVENT DATE: 20190415
